FAERS Safety Report 10023349 (Version 2)
Quarter: 2014Q4

REPORT INFORMATION
  Report Type: Spontaneous
  Country: JP (occurrence: JP)
  Receive Date: 20140320
  Receipt Date: 20141027
  Transmission Date: 20150528
  Serious: No
  Sender: FDA-Public Use
  Company Number: JP-AMGEN-JPNSP2014018948

PATIENT
  Age: 74 Year
  Sex: Male
  Weight: 77 kg

DRUGS (17)
  1. ELPLAT [Concomitant]
     Active Substance: OXALIPLATIN
     Dosage: 160 MG, Q2WEEKS
     Route: 041
     Dates: start: 20130626
  2. GLUCOSE [Concomitant]
     Active Substance: DEXTROSE
     Dosage: UNK, Q2WEEKS
     Route: 041
     Dates: start: 20130626
  3. GRANISETRON                        /01178102/ [Concomitant]
     Active Substance: GRANISETRON
     Dosage: 3 MG, Q2WEEKS
     Route: 041
     Dates: start: 20130626
  4. MINOPEN [Concomitant]
     Active Substance: MINOCYCLINE HYDROCHLORIDE
     Indication: PROPHYLAXIS
     Dosage: 200 MG, BID
     Route: 048
     Dates: start: 20130626
  5. 5-FU                               /00098801/ [Concomitant]
     Active Substance: FLUOROURACIL
     Indication: COLON CANCER
     Dosage: UNK
     Route: 042
     Dates: start: 20120307
  6. VECTIBIX [Suspect]
     Active Substance: PANITUMUMAB
     Dosage: 470 MG, UNK
     Route: 041
     Dates: start: 20140527, end: 20140812
  7. VECTIBIX [Suspect]
     Active Substance: PANITUMUMAB
     Dosage: 470 MG, Q2WEEKS
     Route: 041
     Dates: start: 20131009, end: 20131106
  8. ELPLAT [Concomitant]
     Active Substance: OXALIPLATIN
     Indication: COLON CANCER
     Dosage: UNK
     Route: 041
     Dates: start: 20120307
  9. CALCIUM LEVOFOLINATE [Concomitant]
     Active Substance: LEVOLEUCOVORIN CALCIUM
     Dosage: 350 MG, Q2WEEKS
     Route: 041
     Dates: start: 20130626
  10. DECADRON                           /00016002/ [Concomitant]
     Active Substance: DEXAMETHASONE
     Dosage: 8 MG, Q2WEEKS
     Route: 041
     Dates: start: 20130626
  11. VECTIBIX [Suspect]
     Active Substance: PANITUMUMAB
     Indication: COLON CANCER
     Dosage: UNK
     Route: 041
     Dates: start: 20120307
  12. 5-FU                               /00098801/ [Concomitant]
     Active Substance: FLUOROURACIL
     Dosage: 760 MG, Q2WEEKS
     Route: 040
     Dates: start: 20130626
  13. 5-FU                               /00098801/ [Concomitant]
     Active Substance: FLUOROURACIL
     Dosage: 4600 MG, Q2WEEKS
     Route: 041
     Dates: start: 20130626
  14. CALCIUM LEVOFOLINATE [Concomitant]
     Active Substance: LEVOLEUCOVORIN CALCIUM
     Indication: COLON CANCER
     Dosage: UNK
     Route: 041
     Dates: start: 20120307
  15. HIRUDOID                           /00723701/ [Concomitant]
     Indication: PROPHYLAXIS
     Dosage: UNK
     Route: 062
     Dates: start: 20130626
  16. VECTIBIX [Suspect]
     Active Substance: PANITUMUMAB
     Dosage: 470 MG, Q2WEEKS
     Route: 041
     Dates: start: 20130626, end: 20130821
  17. BISMILLA [Concomitant]
     Dosage: UNK, Q2WEEKS
     Route: 041
     Dates: start: 20130626

REACTIONS (5)
  - Pruritus [Not Recovered/Not Resolved]
  - Rash [Not Recovered/Not Resolved]
  - Flushing [Unknown]
  - Stomatitis [Not Recovered/Not Resolved]
  - Paronychia [Recovering/Resolving]

NARRATIVE: CASE EVENT DATE: 20130627
